FAERS Safety Report 16901099 (Version 1)
Quarter: 2019Q4

REPORT INFORMATION
  Report Type: Spontaneous
  Country: US (occurrence: US)
  Receive Date: 20191009
  Receipt Date: 20191009
  Transmission Date: 20200122
  Serious: No
  Sender: FDA-Public Use
  Company Number: US-TEVA-2019-US-1118182

PATIENT
  Sex: Female
  Weight: 58.97 kg

DRUGS (1)
  1. CELECOXIB. [Suspect]
     Active Substance: CELECOXIB
     Indication: OSTEOPENIA
     Dosage: 200 MILLIGRAM DAILY;
     Route: 048
     Dates: start: 201602

REACTIONS (8)
  - Joint swelling [Unknown]
  - Feeling hot [Unknown]
  - Hyperhidrosis [Unknown]
  - Fatigue [Unknown]
  - Renal disorder [Unknown]
  - Pharyngeal swelling [Unknown]
  - Muscular weakness [Unknown]
  - Peripheral swelling [Unknown]
